FAERS Safety Report 22059199 (Version 1)
Quarter: 2023Q1

REPORT INFORMATION
  Report Type: Spontaneous
  Country: US (occurrence: None)
  Receive Date: 20230302
  Receipt Date: 20230302
  Transmission Date: 20230417
  Serious: No
  Sender: FDA-Public Use
  Company Number: None

PATIENT
  Sex: Female

DRUGS (1)
  1. NUCALA [Suspect]
     Active Substance: MEPOLIZUMAB
     Route: 058
     Dates: start: 2019

REACTIONS (5)
  - Fall [None]
  - Skin laceration [None]
  - Cardiac disorder [None]
  - Cardiac pacemaker insertion [None]
  - Therapy interrupted [None]
